FAERS Safety Report 13471847 (Version 5)
Quarter: 2017Q3

REPORT INFORMATION
  Report Type: Spontaneous
  Country: US (occurrence: US)
  Receive Date: 20170424
  Receipt Date: 20170816
  Transmission Date: 20171127
  Serious: No
  Sender: FDA-Public Use
  Company Number: US-PFIZER INC-2017176410

PATIENT
  Age: 70 Year
  Sex: Female
  Weight: 68 kg

DRUGS (2)
  1. ESTRING [Suspect]
     Active Substance: ESTRADIOL
     Indication: VULVOVAGINAL DRYNESS
     Dosage: 2 MG, UNK
     Route: 067
     Dates: start: 20100813, end: 20170505
  2. ESTRING [Suspect]
     Active Substance: ESTRADIOL
     Indication: ATROPHIC VULVOVAGINITIS
     Dosage: 2 MG, EVERY 3 MONTHS
     Route: 067

REACTIONS (3)
  - Vulvovaginal discomfort [Recovered/Resolved]
  - Drug ineffective [Unknown]
  - Product quality issue [Unknown]
